FAERS Safety Report 6420245-9 (Version None)
Quarter: 2009Q4

REPORT INFORMATION
  Report Type: 
  Country: None (occurrence: None)
  Receive Date: 20091029
  Receipt Date: 20091021
  Transmission Date: 20100525
  Serious: Yes (Other)
  Sender: FDA-Public Use
  Company Number: PHHY2009DE45906

PATIENT
  Sex: Female
  Weight: 158.5 kg

DRUGS (2)
  1. CGS 20267 T30748+ [Suspect]
     Indication: BREAST CANCER
     Dosage: 2.5 MG/DAY
     Route: 048
     Dates: start: 20090322
  2. HERCEPTIN [Concomitant]
     Dosage: UNK
     Dates: start: 20081201, end: 20090601

REACTIONS (4)
  - ARTHRALGIA [None]
  - HOT FLUSH [None]
  - NEUROPATHY PERIPHERAL [None]
  - TACHYCARDIA [None]
